FAERS Safety Report 6457304-0 (Version None)
Quarter: 2009Q4

REPORT INFORMATION
  Report Type: 
  Country: None (occurrence: None)
  Receive Date: 20091125
  Receipt Date: 20091119
  Transmission Date: 20100525
  Serious: Yes (Death)
  Sender: FDA-Public Use
  Company Number: US-PURDUE-USA-2009-0041159

PATIENT
  Sex: Male

DRUGS (6)
  1. OXYCONTIN [Suspect]
     Indication: PAIN
     Dosage: 40 MG, TID
     Route: 048
     Dates: end: 20090301
  2. FENTANYL-100 [Suspect]
     Indication: BACK PAIN
     Dosage: 50 MCG, Q72H
     Route: 062
     Dates: start: 20091029, end: 20091102
  3. OXYCODONE HCL AND ACETAMINOPHEN [Suspect]
     Indication: PAIN
     Dosage: 1 TABLET, TID
     Route: 048
     Dates: start: 20090101, end: 20090301
  4. LYRICA [Suspect]
     Indication: PAIN
     Dosage: 100 MG, UNK
     Route: 048
     Dates: start: 20091010
  5. ZOLPIDEM [Suspect]
     Indication: INSOMNIA
     Dosage: 10 MG, DAILY
     Route: 048
     Dates: start: 20091027
  6. TRIFLUOPERAZINE [Suspect]
     Indication: SCHIZOPHRENIA
     Dosage: 10 MG, BID
     Route: 048
     Dates: end: 20090801

REACTIONS (1)
  - DEATH [None]
